FAERS Safety Report 15239602 (Version 11)
Quarter: 2020Q3

REPORT INFORMATION
  Report Type: Report from Study
  Country: US (occurrence: US)
  Receive Date: 20180803
  Receipt Date: 20200723
  Transmission Date: 20201102
  Serious: Yes (Hospitalization, Other)
  Sender: FDA-Public Use
  Company Number: PHHY2018US060595

PATIENT
  Age: 58 Year
  Sex: Female
  Weight: 56.8 kg

DRUGS (14)
  1. GILENYA [Suspect]
     Active Substance: FINGOLIMOD HYDROCHLORIDE
     Indication: MULTIPLE SCLEROSIS
     Dosage: UNK
     Route: 048
     Dates: start: 20151130
  2. OXYCODONE [Concomitant]
     Active Substance: OXYCODONE
     Indication: PAIN
     Dosage: 15 MG, TID
     Route: 065
     Dates: start: 2012
  3. GABAPENTIN. [Concomitant]
     Active Substance: GABAPENTIN
     Indication: PRODUCT USED FOR UNKNOWN INDICATION
     Dosage: 600 MG, QHS
     Route: 048
  4. OXYCODONE [Concomitant]
     Active Substance: OXYCODONE
     Dosage: 15 MG, QD
     Route: 048
     Dates: start: 20180416
  5. NEURONTIN [Concomitant]
     Active Substance: GABAPENTIN
     Indication: MULTIPLE SCLEROSIS
     Dosage: 1500 MG, QD
     Route: 065
     Dates: start: 2013
  6. CYMBALTA [Concomitant]
     Active Substance: DULOXETINE HYDROCHLORIDE
     Indication: DEPRESSION
     Dosage: 60 MG, QD
     Route: 065
     Dates: start: 2011
  7. BACLOFEN. [Concomitant]
     Active Substance: BACLOFEN
     Dosage: 10 UNK, UNK
     Route: 048
     Dates: start: 20180415
  8. OXCARBAZEPINE. [Concomitant]
     Active Substance: OXCARBAZEPINE
     Indication: PRODUCT USED FOR UNKNOWN INDICATION
     Dosage: 300 MG, BID
     Route: 048
  9. NEURONTIN [Concomitant]
     Active Substance: GABAPENTIN
     Indication: TRIGEMINAL NEURALGIA
  10. TRILEPTAL [Concomitant]
     Active Substance: OXCARBAZEPINE
     Indication: TRIGEMINAL NEURALGIA
     Dosage: 300 MG, TID
     Route: 065
     Dates: start: 20170322
  11. GILENYA [Suspect]
     Active Substance: FINGOLIMOD HYDROCHLORIDE
     Dosage: 0.5 MG, QD
     Route: 048
     Dates: start: 20180416
  12. BACLOFEN. [Concomitant]
     Active Substance: BACLOFEN
     Indication: MULTIPLE SCLEROSIS
     Dosage: 10 MG, TID
     Route: 065
     Dates: start: 20161123
  13. CYMBALTA [Concomitant]
     Active Substance: DULOXETINE HYDROCHLORIDE
     Indication: MULTIPLE SCLEROSIS
     Dosage: 60 UNK, UNK
     Route: 048
     Dates: start: 20180416
  14. RALOXIFENE. [Concomitant]
     Active Substance: RALOXIFENE
     Indication: PRODUCT USED FOR UNKNOWN INDICATION
     Dosage: 60 MG, QD
     Route: 048
     Dates: start: 20180416

REACTIONS (33)
  - Electroencephalogram abnormal [Unknown]
  - Somnolence [Unknown]
  - Urinary incontinence [Unknown]
  - Metabolic acidosis [Recovered/Resolved]
  - Headache [Unknown]
  - Multiple sclerosis [Recovered/Resolved]
  - Delirium [Recovered/Resolved]
  - Lymphocyte count increased [Unknown]
  - Pruritus [Not Recovered/Not Resolved]
  - Anal incontinence [Not Recovered/Not Resolved]
  - Encephalopathy [Recovered/Resolved]
  - Urinary tract infection [Recovered/Resolved]
  - Aphasia [Recovered/Resolved]
  - Language disorder [Unknown]
  - Acute kidney injury [Recovered/Resolved]
  - Encephalopathy [Recovered/Resolved]
  - Musculoskeletal pain [Not Recovered/Not Resolved]
  - Hypernatraemia [Recovered/Resolved]
  - White blood cell count decreased [Unknown]
  - Hypertension [Recovered/Resolved]
  - Dehydration [Recovered/Resolved]
  - Mental disorder [Recovered/Resolved]
  - Dysarthria [Unknown]
  - Brain scan abnormal [Not Recovered/Not Resolved]
  - Speech disorder [Recovered/Resolved]
  - Cerebral disorder [Unknown]
  - Restless legs syndrome [Not Recovered/Not Resolved]
  - Arthralgia [Not Recovered/Not Resolved]
  - Seizure [Recovered/Resolved]
  - Encephalopathy [Not Recovered/Not Resolved]
  - Anal incontinence [Recovered/Resolved]
  - Confusional state [Recovered/Resolved]
  - Melanocytic naevus [Recovered/Resolved]

NARRATIVE: CASE EVENT DATE: 20180415
